FAERS Safety Report 5554937-0 (Version None)
Quarter: 2007Q4

REPORT INFORMATION
  Report Type: 
  Country: None (occurrence: None)
  Receive Date: 20071213
  Receipt Date: 20071204
  Transmission Date: 20080405
  Serious: Yes (Hospitalization)
  Sender: FDA-Public Use
  Company Number: FR-ASTRAZENECA-2007CG01722

PATIENT
  Age: 15042 Day
  Sex: Male

DRUGS (8)
  1. INEXIUM [Suspect]
     Route: 042
     Dates: start: 20070914
  2. NEUPOGEN [Suspect]
     Indication: NEUTROPENIA
     Route: 042
     Dates: start: 20070905
  3. NEORAL [Suspect]
     Indication: BONE MARROW FAILURE
     Route: 048
     Dates: start: 20070831
  4. ACYCLOVIR [Suspect]
     Route: 042
     Dates: start: 20070914
  5. TAZOCILLINE [Suspect]
     Dosage: 4 GRAMS + 250 MG QID
     Route: 042
     Dates: start: 20070831, end: 20071009
  6. COLIMYCINE [Suspect]
     Route: 048
     Dates: start: 20070901
  7. NOXAFIL [Suspect]
     Route: 042
     Dates: start: 20070901, end: 20071004
  8. TAVANIC [Suspect]
     Dates: start: 20071002

REACTIONS (2)
  - HEPATITIS CHOLESTATIC [None]
  - JAUNDICE [None]
